FAERS Safety Report 7119940-8 (Version None)
Quarter: 2010Q4

REPORT INFORMATION
  Report Type: 
  Country: None (occurrence: None)
  Receive Date: 20101123
  Receipt Date: 20101110
  Transmission Date: 20110411
  Serious: Yes (Hospitalization, Other)
  Sender: FDA-Public Use
  Company Number: US-PFIZER INC-2010139130

PATIENT
  Sex: Female
  Weight: 68.027 kg

DRUGS (13)
  1. XANAX [Suspect]
     Indication: ANXIETY
     Dosage: 0.25 MG, 3X/DAY
     Dates: start: 20100927, end: 20101006
  2. PRISTIQ [Suspect]
     Indication: DEPRESSION
     Dosage: 50 MG, DAILY
     Dates: start: 20100101, end: 20101005
  3. PRISTIQ [Suspect]
     Dosage: 100 MG, DAILY
  4. PLAVIX [Concomitant]
     Dosage: 75 MG, DAILY
  5. ACETYLSALICYLIC ACID [Concomitant]
     Dosage: 81 MG, DAILY
  6. CRESTOR [Concomitant]
     Dosage: 20 MG, DAILY
  7. LISINOPRIL [Concomitant]
     Dosage: 2.5 MG, DAILY
  8. SYNTHROID [Concomitant]
     Dosage: 0.075 MG, DAILY
  9. CALCIUM [Concomitant]
     Dosage: 1200 MG, DAILY
  10. MULTI-VITAMINS [Concomitant]
     Dosage: UNK, DAILY
  11. IBANDRONATE SODIUM [Concomitant]
     Dosage: 150 MG, MONTHLY
  12. VITAMIN B-12 [Concomitant]
     Dosage: UNK
     Route: 030
  13. SYMBICORT [Concomitant]
     Dosage: 2 PUFFS, 2X/DAY
     Route: 055

REACTIONS (17)
  - ANXIETY [None]
  - BLOOD POTASSIUM DECREASED [None]
  - DEHYDRATION [None]
  - DEPRESSED MOOD [None]
  - DRUG INEFFECTIVE [None]
  - DYSPNOEA [None]
  - FEELING ABNORMAL [None]
  - HEART RATE INCREASED [None]
  - INTENTIONAL OVERDOSE [None]
  - LOSS OF CONSCIOUSNESS [None]
  - MAJOR DEPRESSION [None]
  - MEMORY IMPAIRMENT [None]
  - PANIC ATTACK [None]
  - SOMNOLENCE [None]
  - SUICIDAL IDEATION [None]
  - SUICIDE ATTEMPT [None]
  - THINKING ABNORMAL [None]
